FAERS Safety Report 6141225-7 (Version None)
Quarter: 2009Q1

REPORT INFORMATION
  Report Type: 
  Country: None (occurrence: None)
  Receive Date: 20090331
  Receipt Date: 20090320
  Transmission Date: 20090719
  Serious: Yes (Hospitalization)
  Sender: FDA-Public Use
  Company Number: 2009002046

PATIENT
  Sex: Female

DRUGS (1)
  1. ACTIQ [Suspect]
     Dosage: BU
     Route: 002

REACTIONS (1)
  - HYPERSENSITIVITY [None]
